FAERS Safety Report 23949768 (Version 1)
Quarter: 2024Q2

REPORT INFORMATION
  Report Type: Spontaneous
  Country: IT (occurrence: None)
  Receive Date: 20240607
  Receipt Date: 20240607
  Transmission Date: 20240716
  Serious: Yes (Hospitalization)
  Sender: FDA-Public Use
  Company Number: 2024A132556

PATIENT
  Age: 38 Year
  Sex: Male
  Weight: 75 kg

DRUGS (7)
  1. QUETIAPINE [Suspect]
     Active Substance: QUETIAPINE
     Indication: Depression
     Dosage: FOR THE FIRST TWO DAYS THE DRUG WAS ADMINISTERED AT A DOSAGE OF 25 MG/DAY, THEN INCREASED TO 50 M...
     Route: 048
     Dates: start: 20240422, end: 20240506
  2. QUETIAPINE [Suspect]
     Active Substance: QUETIAPINE
     Indication: Depression
     Dosage: FOR THE FIRST TWO DAYS THE DRUG WAS ADMINISTERED AT A DOSAGE OF 25 MG/DAY, THEN INCREASED TO 50 M...
     Route: 048
     Dates: start: 20240422, end: 20240506
  3. CEFAZOLINE TEVA [Concomitant]
     Indication: Antibiotic prophylaxis
     Dosage: 2 G IN 100 ML OF PHYSIOLOGICAL SOLUTION X 3 DAYS
     Dates: start: 20240422, end: 20240508
  4. ENOXAPARIN SODIUM [Concomitant]
     Active Substance: ENOXAPARIN SODIUM
     Indication: Thrombosis prophylaxis
     Dosage: 6000 UI DAY
     Dates: start: 20240422, end: 20240518
  5. DEXMEDETOMIDINE ALTAN [Concomitant]
     Indication: Sedation
     Dosage: CONTINUOUS INFUSION
     Dates: start: 20240422, end: 20240516
  6. UNIFOL [Concomitant]
     Indication: Sedation
     Dosage: CONTINUOUS INFUSION
     Dates: start: 20240422, end: 20240502
  7. REMIFENTANIL MYLAN GENERICS [Concomitant]
     Indication: Analgesic therapy
     Dates: start: 20240422, end: 20240513

REACTIONS (1)
  - Lymphopenia [Recovered/Resolved]

NARRATIVE: CASE EVENT DATE: 20240430
